FAERS Safety Report 15094462 (Version 1)
Quarter: 2018Q2

REPORT INFORMATION
  Report Type: Spontaneous
  Country: IT (occurrence: IT)
  Receive Date: 20180630
  Receipt Date: 20180630
  Transmission Date: 20180711
  Serious: Yes (Other)
  Sender: FDA-Public Use
  Company Number: IT-TEVA-2018-IT-918074

PATIENT
  Age: 70 Year
  Sex: Male

DRUGS (4)
  1. SILDENAFIL. [Suspect]
     Active Substance: SILDENAFIL
     Indication: ERECTILE DYSFUNCTION
     Route: 048
     Dates: start: 20171204, end: 20171204
  2. TAPAZOLE [Concomitant]
     Active Substance: METHIMAZOLE
  3. TELMISARTAN. [Concomitant]
     Active Substance: TELMISARTAN
  4. NORMIX [Concomitant]
     Active Substance: RIFAXIMIN

REACTIONS (3)
  - Palpitations [Recovering/Resolving]
  - Tremor [Recovering/Resolving]
  - Arrhythmia [Recovering/Resolving]

NARRATIVE: CASE EVENT DATE: 20171204
